FAERS Safety Report 24068347 (Version 2)
Quarter: 2024Q3

REPORT INFORMATION
  Report Type: Spontaneous
  Country: FI (occurrence: FI)
  Receive Date: 20240710
  Receipt Date: 20240710
  Transmission Date: 20241016
  Serious: No
  Sender: ROCHE
  Company Number: FI-ROCHE-3522569

PATIENT
  Age: 80 Year
  Sex: Male

DRUGS (1)
  1. VABYSMO [Suspect]
     Active Substance: FARICIMAB\FARICIMAB-SVOA
     Indication: Neovascular age-related macular degeneration
     Dosage: ON 23/FEB/2024 RECEIVED THE THIRD INJECTION
     Route: 065

REACTIONS (3)
  - Off label use [Unknown]
  - Conjunctival haemorrhage [Unknown]
  - Arthralgia [Unknown]

NARRATIVE: CASE EVENT DATE: 20240223
